FAERS Safety Report 7163850-7 (Version None)
Quarter: 2010Q4

REPORT INFORMATION
  Report Type: 
  Country: None (occurrence: None)
  Receive Date: 20101215
  Receipt Date: 20100622
  Transmission Date: 20110411
  Serious: Yes (Other)
  Sender: FDA-Public Use
  Company Number: US-PFIZER INC-2010078392

PATIENT
  Sex: Female

DRUGS (3)
  1. LYRICA [Suspect]
     Dosage: 50 MG, 2X/DAY
  2. PHENYTOIN [Suspect]
     Dosage: 100 MG, 2X/DAY
  3. SEROQUEL [Concomitant]
     Dosage: UNK

REACTIONS (1)
  - HYPERSOMNIA [None]
